FAERS Safety Report 6408858-1 (Version None)
Quarter: 2009Q4

REPORT INFORMATION
  Report Type: 
  Country: None (occurrence: None)
  Receive Date: 20091021
  Receipt Date: 20091014
  Transmission Date: 20100525
  Serious: Yes (Other)
  Sender: FDA-Public Use
  Company Number: US-JNJFOC-20091004656

PATIENT
  Sex: Male

DRUGS (2)
  1. RISPERDAL [Suspect]
     Indication: IRRITABILITY
     Route: 048
     Dates: start: 20090601
  2. LEXAPRO [Concomitant]
     Route: 048
     Dates: start: 20090101

REACTIONS (1)
  - SICKLE CELL ANAEMIA [None]
